FAERS Safety Report 15888027 (Version 2)
Quarter: 2019Q1

REPORT INFORMATION
  Report Type: Spontaneous
  Country: US (occurrence: US)
  Receive Date: 20190130
  Receipt Date: 20190308
  Transmission Date: 20190417
  Serious: No
  Sender: FDA-Public Use
  Company Number: US-PFIZER INC-2019039513

PATIENT
  Age: 74 Year
  Sex: Female

DRUGS (1)
  1. XELJANZ XR [Suspect]
     Active Substance: TOFACITINIB CITRATE
     Indication: RHEUMATOID ARTHRITIS
     Dosage: 11 MG, 1X/DAY
     Route: 048
     Dates: start: 201812

REACTIONS (4)
  - Drug ineffective [Unknown]
  - Ear discomfort [Unknown]
  - Pruritus [Unknown]
  - Formication [Unknown]
